FAERS Safety Report 5034954-X (Version None)
Quarter: 2006Q2

REPORT INFORMATION
  Report Type: 
  Country: None (occurrence: None)
  Receive Date: 20060627
  Receipt Date: 20060621
  Transmission Date: 20061013
  Serious: Yes (Other)
  Sender: FDA-Public Use
  Company Number: US-JNJFOC-20060405397

PATIENT
  Sex: Male
  Weight: 107.96 kg

DRUGS (5)
  1. FLEXERIL [Suspect]
     Indication: INTERVERTEBRAL DISC PROTRUSION
     Route: 048
  2. FLEXERIL [Suspect]
     Indication: MUSCLE SPASMS
     Route: 048
  3. NEURONTIN [Concomitant]
     Indication: NEURALGIA
  4. ULTRAM [Concomitant]
     Indication: PAIN
     Dosage: AS NEEDED
  5. AMBIEN [Concomitant]
     Indication: INSOMNIA
     Dosage: HS

REACTIONS (2)
  - HYPERTENSION [None]
  - TACHYCARDIA [None]
